FAERS Safety Report 9855282 (Version 1)
Quarter: 2013Q4

REPORT INFORMATION
  Report Type: Spontaneous
  Country: US (occurrence: None)
  Receive Date: 20131226
  Receipt Date: 20131226
  Transmission Date: 20140711
  Serious: Yes (Other)
  Sender: FDA-Public Use
  Company Number: PHEH2013US006379

PATIENT
  Age: 20 Year
  Sex: Male

DRUGS (4)
  1. AFINITOR (RAD) UNKNOWN [Suspect]
     Indication: TUBEROUS SCLEROSIS
     Route: 048
     Dates: start: 20130309, end: 201303
  2. DEPAKOTE (VALPROATE SEMISODIUM) [Concomitant]
  3. KEPPRA (LEVETIRACETAM) [Concomitant]
  4. LAMICTAL (LAMOTRIGINE) [Concomitant]

REACTIONS (4)
  - Convulsion [None]
  - Urticaria [None]
  - Acne cystic [None]
  - Insomnia [None]
